FAERS Safety Report 12705372 (Version 1)
Quarter: 2016Q3

REPORT INFORMATION
  Report Type: Spontaneous
  Country: US (occurrence: None)
  Receive Date: 20160831
  Receipt Date: 20160831
  Transmission Date: 20161109
  Serious: Yes (Hospitalization, Disabling, Other)
  Sender: FDA-Public Use
  Company Number: None

PATIENT
  Age: 27 Year
  Sex: Female
  Weight: 113.4 kg

DRUGS (1)
  1. SKYLA [Suspect]
     Active Substance: LEVONORGESTREL
     Dates: start: 20160524, end: 20160727

REACTIONS (6)
  - Mental disorder [None]
  - Reading disorder [None]
  - Headache [None]
  - Migraine [None]
  - Aphasia [None]
  - Dysgraphia [None]

NARRATIVE: CASE EVENT DATE: 20160524
